FAERS Safety Report 7630832-8 (Version None)
Quarter: 2011Q3

REPORT INFORMATION
  Report Type: 
  Country: None (occurrence: None)
  Receive Date: 20110723
  Receipt Date: 20110715
  Transmission Date: 20111222
  Serious: Yes (Other)
  Sender: FDA-Public Use
  Company Number: US-ABBOTT-11P-163-0839918-00

PATIENT
  Sex: Female

DRUGS (7)
  1. HUMIRA [Suspect]
     Indication: PSORIASIS
     Dates: start: 20110401, end: 20110501
  2. CLONIDINE [Concomitant]
     Indication: HYPERTENSION
  3. ITCH PILL [Concomitant]
     Indication: PSORIASIS
  4. METHOTREXATE [Concomitant]
     Indication: PSORIASIS
     Dosage: 3 TAB WEEKLY
  5. METOPROLOL TARTRATE [Concomitant]
     Indication: HYPERTENSION
  6. DOXAZOSIN MESYLATE [Concomitant]
     Indication: HYPERTENSION
     Dosage: DAILY
  7. TEGRETOL [Concomitant]
     Indication: CONVULSION
     Dosage: 2 IN 1 DAY, GENERIC VERSION

REACTIONS (2)
  - DIARRHOEA [None]
  - ASTHENIA [None]
